FAERS Safety Report 4736048-7 (Version None)
Quarter: 2005Q3

REPORT INFORMATION
  Report Type: 
  Country: None (occurrence: None)
  Receive Date: 20050805
  Receipt Date: 20050509
  Transmission Date: 20060218
  Serious: Yes (Death, Other)
  Sender: FDA-Public Use
  Company Number: US-MERCK-0505USA01106

PATIENT
  Age: 76 Year
  Sex: Male
  Weight: 130 kg

DRUGS (11)
  1. VIOXX [Suspect]
     Indication: ARTHRITIS
     Route: 048
     Dates: start: 20001115, end: 20040901
  2. VIOXX [Suspect]
     Indication: ARTHRALGIA
     Route: 048
     Dates: start: 20001115, end: 20040901
  3. IMDUR [Concomitant]
     Route: 065
  4. PROBENECID [Concomitant]
     Route: 065
  5. ALLOPURINOL [Concomitant]
     Route: 065
  6. COMBIVENT [Concomitant]
     Route: 065
  7. AVANDIA [Concomitant]
     Route: 065
  8. LOPRESSOR [Concomitant]
     Route: 065
  9. INSULIN [Concomitant]
     Route: 065
  10. LASIX [Concomitant]
     Route: 065
  11. VASOTEC RPD [Concomitant]
     Route: 065

REACTIONS (12)
  - ASTHENIA [None]
  - CATARACT [None]
  - DECREASED ACTIVITY [None]
  - DIARRHOEA [None]
  - GASTRIC DISORDER [None]
  - HYPOAESTHESIA [None]
  - LUNG DISORDER [None]
  - MYOCARDIAL INFARCTION [None]
  - OEDEMA PERIPHERAL [None]
  - RENAL DISORDER [None]
  - RENAL FAILURE [None]
  - RESPIRATORY FAILURE [None]
